FAERS Safety Report 25704400 (Version 2)
Quarter: 2025Q3

REPORT INFORMATION
  Report Type: Spontaneous
  Country: US (occurrence: US)
  Receive Date: 20250820
  Receipt Date: 20250925
  Transmission Date: 20251020
  Serious: No
  Sender: LYNE LABORATORIES
  Company Number: US-Lyne Laboratories Inc.-2182858

PATIENT
  Sex: Female

DRUGS (1)
  1. FLUOCINOLONE ACETONIDE [Suspect]
     Active Substance: FLUOCINOLONE ACETONIDE
     Indication: Alopecia

REACTIONS (2)
  - Peripheral swelling [Recovered/Resolved]
  - Product use in unapproved indication [Unknown]
